FAERS Safety Report 20674897 (Version 2)
Quarter: 2022Q2

REPORT INFORMATION
  Report Type: Report from Study
  Country: CO (occurrence: CO)
  Receive Date: 20220405
  Receipt Date: 20220502
  Transmission Date: 20220721
  Serious: Yes (Other)
  Sender: FDA-Public Use
  Company Number: CO-BAYER-2022A047713

PATIENT
  Sex: Female

DRUGS (4)
  1. EYLEA [Suspect]
     Active Substance: AFLIBERCEPT
     Indication: Diabetic retinal oedema
     Dosage: 2 MG, Q1MON, BILATERAL  (SOLUTION FOR INJECTION)
     Route: 031
     Dates: start: 20211113, end: 20211113
  2. EYLEA [Suspect]
     Active Substance: AFLIBERCEPT
     Dosage: 2 MG, Q1MON, BILATERAL  (SOLUTION FOR INJECTION)
     Route: 031
     Dates: start: 20211217, end: 20211217
  3. EYLEA [Suspect]
     Active Substance: AFLIBERCEPT
     Dosage: 2 MG, Q1MON, BILATERAL  (SOLUTION FOR INJECTION)
     Route: 031
     Dates: start: 20220128, end: 20220128
  4. EYLEA [Suspect]
     Active Substance: AFLIBERCEPT
     Dosage: 2 MG, Q1MON, BILATERAL  (SOLUTION FOR INJECTION) 40 MG/ML
     Route: 031
     Dates: start: 20220419, end: 20220419

REACTIONS (2)
  - Blindness unilateral [Not Recovered/Not Resolved]
  - Inappropriate schedule of product administration [Not Recovered/Not Resolved]

NARRATIVE: CASE EVENT DATE: 20211113
